FAERS Safety Report 9479132 (Version 2)
Quarter: 2013Q3

REPORT INFORMATION
  Report Type: Report from Study
  Country: US (occurrence: US)
  Receive Date: 20130827
  Receipt Date: 20130827
  Transmission Date: 20140515
  Serious: Yes (Hospitalization, Other)
  Sender: FDA-Public Use
  Company Number: US-BRISTOL-MYERS SQUIBB COMPANY-16231680

PATIENT
  Age: 64 Year
  Sex: Female

DRUGS (34)
  1. APIXABAN [Suspect]
     Indication: EMBOLISM
     Dosage: INTERRUPTED 12-NOV-2011
     Route: 048
     Dates: start: 20111014
  2. PLACEBO [Suspect]
     Indication: EMBOLISM
     Dosage: APIXABAN,WARFARIN STOPPED ON:12NOV11, ENOXAPARIN 19OCT11
     Dates: start: 20111014
  3. LOPERAMIDE [Concomitant]
     Indication: DIARRHOEA
     Dates: start: 20110915
  4. PENTASA [Concomitant]
     Indication: CROHN^S DISEASE
     Dates: start: 20110531
  5. PREDNISONE [Concomitant]
     Indication: CROHN^S DISEASE
     Dates: start: 20110831
  6. CELLCEPT [Concomitant]
     Indication: MYELITIS TRANSVERSE
     Route: 048
     Dates: start: 20080801
  7. PROTONIX [Concomitant]
     Indication: GASTROOESOPHAGEAL REFLUX DISEASE
     Route: 042
     Dates: start: 20111013
  8. FERROUS SULFATE [Concomitant]
     Indication: ANAEMIA
     Route: 048
     Dates: start: 20111019
  9. DIPHENOXYLATE [Concomitant]
     Indication: DIARRHOEA
     Dosage: 1DF:8 TAB
     Route: 048
     Dates: start: 20111020
  10. MULTIVITAMIN [Concomitant]
     Route: 048
     Dates: start: 20111019
  11. FESOTERODINE [Concomitant]
     Indication: HYPERTONIC BLADDER
     Route: 048
     Dates: start: 20111024
  12. FLUDROCORTISONE [Concomitant]
     Indication: HYPOTENSION
     Route: 048
     Dates: start: 20111024
  13. CARAFATE [Concomitant]
     Indication: ULCER
     Route: 048
     Dates: start: 20111031
  14. ACETAMINOPHEN [Concomitant]
     Indication: PAIN
     Route: 048
     Dates: start: 20111019
  15. MOM [Concomitant]
     Indication: CONSTIPATION
     Route: 048
     Dates: start: 20111019
  16. ALPRAZOLAM [Concomitant]
     Indication: ANXIETY
     Route: 048
     Dates: start: 20111019
  17. VITAMIN C [Concomitant]
     Route: 048
     Dates: start: 20111031
  18. MIDODRINE HCL [Concomitant]
  19. VICODIN [Concomitant]
  20. LOMOTIL [Concomitant]
  21. IMODIUM [Concomitant]
  22. CARBOCAL [Concomitant]
  23. VITAMIN D [Concomitant]
  24. ZINC [Concomitant]
  25. TOVIAZ [Concomitant]
  26. DULCOLAX [Concomitant]
     Indication: CONSTIPATION
     Dosage: FORMULATION:SUP
     Dates: start: 20111019
  27. BIFIDOBACTERIUM BIFIDUM [Concomitant]
  28. CLOPIDOGREL BISULFATE [Concomitant]
  29. COLESEVELAM [Concomitant]
  30. FUROSEMIDE [Concomitant]
  31. ERGOCALCIFEROL [Concomitant]
  32. ERTAPENEM [Concomitant]
  33. MECLIZINE [Concomitant]
  34. ATROPINE [Concomitant]

REACTIONS (3)
  - Gastrointestinal haemorrhage [Recovered/Resolved]
  - Cytomegalovirus colitis [Recovered/Resolved]
  - Urinary tract infection [Recovered/Resolved]
